FAERS Safety Report 4756102-3 (Version None)
Quarter: 2005Q3

REPORT INFORMATION
  Report Type: 
  Country: None (occurrence: None)
  Receive Date: 20050830
  Receipt Date: 20050714
  Transmission Date: 20060218
  Serious: Yes (Other)
  Sender: FDA-Public Use
  Company Number: US-AMGEN-US142679

PATIENT
  Sex: Female

DRUGS (5)
  1. ENBREL [Suspect]
     Indication: RHEUMATOID ARTHRITIS
     Route: 058
     Dates: start: 20010824, end: 20030331
  2. HUMIRA [Suspect]
     Dates: start: 20030615, end: 20040721
  3. PLAQUENIL [Concomitant]
     Route: 065
     Dates: start: 20001227
  4. VOLTAREN [Concomitant]
     Dates: start: 19970801, end: 20030127
  5. METHOTREXATE [Concomitant]
     Dates: start: 19970801, end: 20020828

REACTIONS (5)
  - DRUG HYPERSENSITIVITY [None]
  - EOSINOPHILIA [None]
  - HYPERSENSITIVITY [None]
  - LUPUS-LIKE SYNDROME [None]
  - URTICARIA [None]
